FAERS Safety Report 7786665-5 (Version None)
Quarter: 2011Q3

REPORT INFORMATION
  Report Type: 
  Country: None (occurrence: None)
  Receive Date: 20110929
  Receipt Date: 20110923
  Transmission Date: 20111222
  Serious: Yes (Hospitalization, Other)
  Sender: FDA-Public Use
  Company Number: US-ABBOTT-04P-163-0267133-00

PATIENT
  Sex: Female
  Weight: 49.94 kg

DRUGS (9)
  1. HUMIRA [Suspect]
     Indication: RHEUMATOID ARTHRITIS
     Route: 058
     Dates: start: 20040521
  2. CELEBREX [Concomitant]
     Indication: RHEUMATOID ARTHRITIS
     Route: 048
     Dates: start: 20000101
  3. PLAQUENIL [Concomitant]
     Indication: RHEUMATOID ARTHRITIS
  4. UNKNOWN BLOOD PRESSURE MEDICATION [Suspect]
     Indication: HYPERTENSION
  5. SINGULAIR [Concomitant]
     Indication: ASTHMA
     Route: 048
     Dates: start: 20030101
  6. METHOTREXATE [Concomitant]
     Indication: RHEUMATOID ARTHRITIS
     Route: 048
  7. FOLIC ACID [Concomitant]
     Indication: RHEUMATOID ARTHRITIS
     Route: 048
  8. SYNTHROID [Concomitant]
     Indication: HYPOTHYROIDISM
     Route: 048
  9. PREDNISONE [Concomitant]
     Indication: ASTHMA
     Dosage: OCCASIONAL USE

REACTIONS (9)
  - FATIGUE [None]
  - ASTHENIA [None]
  - LOWER RESPIRATORY TRACT INFECTION FUNGAL [None]
  - APHONIA [None]
  - RASH GENERALISED [None]
  - COCCIDIOIDOMYCOSIS [None]
  - COUGH [None]
  - RASH [None]
  - PULMONARY MASS [None]
